FAERS Safety Report 6436929-2 (Version None)
Quarter: 2009Q4

REPORT INFORMATION
  Report Type: 
  Country: None (occurrence: None)
  Receive Date: 20091111
  Receipt Date: 20091030
  Transmission Date: 20100525
  Serious: Yes (Other)
  Sender: FDA-Public Use
  Company Number: PHHY2009DE47465

PATIENT
  Sex: Female

DRUGS (2)
  1. DIOVAN HCT [Suspect]
     Dosage: 80/12.5 MG, 1 TABLET DAILY
     Route: 048
     Dates: start: 19990101
  2. BONIVA [Concomitant]
     Dosage: 1 DF, QMO

REACTIONS (4)
  - DYSPEPSIA [None]
  - INSOMNIA [None]
  - RHEUMATOID ARTHRITIS [None]
  - VISUAL IMPAIRMENT [None]
